FAERS Safety Report 9135577 (Version 1)
Quarter: 2013Q1

REPORT INFORMATION
  Report Type: Spontaneous
  Country: US (occurrence: US)
  Receive Date: 20130219
  Receipt Date: 20130219
  Transmission Date: 20140127
  Serious: Yes (Other)
  Sender: FDA-Public Use
  Company Number: US-BRISTOL-MYERS SQUIBB COMPANY-16770927

PATIENT
  Age: 64 Year
  Sex: Female
  Weight: 58.5 kg

DRUGS (9)
  1. ABATACEPT SUBQ INJECTION 125MG/ML [Suspect]
     Indication: RHEUMATOID ARTHRITIS
     Dosage: LAST INF:10 DAYS AGO.?LAST INJ ON 17NOV2012
     Route: 058
     Dates: start: 2012
  2. DILTIAZEM HCL [Concomitant]
  3. METHOTREXATE [Concomitant]
  4. FOLIC ACID [Concomitant]
  5. CHLORTALIDONE [Concomitant]
  6. POTASSIUM [Concomitant]
  7. IMIPRAMINE [Concomitant]
  8. LOSARTAN [Concomitant]
  9. PREDNISONE [Concomitant]

REACTIONS (3)
  - Precancerous skin lesion [Unknown]
  - Visual impairment [Not Recovered/Not Resolved]
  - Dysphagia [Unknown]
